FAERS Safety Report 24893891 (Version 1)
Quarter: 2025Q1

REPORT INFORMATION
  Report Type: Spontaneous
  Country: FR (occurrence: FR)
  Receive Date: 20250128
  Receipt Date: 20250128
  Transmission Date: 20250408
  Serious: Yes (Disabling)
  Sender: ACCORD
  Company Number: None

PATIENT
  Age: 71 Year
  Sex: Male
  Weight: 85 kg

DRUGS (2)
  1. TADALAFIL [Suspect]
     Active Substance: TADALAFIL
     Indication: Erectile dysfunction
     Dates: start: 202201, end: 202411
  2. COVERAM [Concomitant]
     Active Substance: AMLODIPINE\PERINDOPRIL

REACTIONS (1)
  - Deafness unilateral [Recovered/Resolved with Sequelae]

NARRATIVE: CASE EVENT DATE: 20240101
